FAERS Safety Report 5792534-2 (Version None)
Quarter: 2008Q2

REPORT INFORMATION
  Report Type: 
  Country: None (occurrence: None)
  Receive Date: 20080626
  Receipt Date: 20080612
  Transmission Date: 20081010
  Serious: Yes (Hospitalization)
  Sender: FDA-Public Use
  Company Number: JP-GENENTECH-262392

PATIENT
  Sex: Male
  Weight: 54.2 kg

DRUGS (6)
  1. BEVACIZUMAB [Suspect]
     Indication: RECTAL CANCER
     Dosage: 270 MG, QD
     Route: 041
     Dates: start: 20080424, end: 20080508
  2. TS-1 [Suspect]
     Indication: RECTAL CANCER
     Route: 048
     Dates: start: 20080424, end: 20080508
  3. IRINOTECAN HCL [Suspect]
     Indication: RECTAL CANCER
     Dosage: 150 MG, QD
     Route: 041
     Dates: start: 20080424, end: 20080508
  4. DEXAMETHASONE [Concomitant]
     Indication: DRUG USE FOR UNKNOWN INDICATION
     Dosage: UNK, UNK
     Dates: start: 20080424, end: 20080508
  5. KYTRIL [Concomitant]
     Indication: DRUG USE FOR UNKNOWN INDICATION
     Dates: start: 20080424, end: 20080508
  6. HANGE-SHASHIN-TO [Concomitant]
     Indication: DRUG USE FOR UNKNOWN INDICATION
     Dates: start: 20080424, end: 20080518

REACTIONS (2)
  - DIARRHOEA [None]
  - GASTROINTESTINAL INFLAMMATION [None]
